FAERS Safety Report 20850250 (Version 1)
Quarter: 2022Q2

REPORT INFORMATION
  Report Type: Spontaneous
  Country: US (occurrence: None)
  Receive Date: 20220518
  Receipt Date: 20220518
  Transmission Date: 20220721
  Serious: Yes (Other)
  Sender: FDA-Public Use
  Company Number: None

PATIENT
  Age: 52 Year
  Sex: Female
  Weight: 68.4 kg

DRUGS (1)
  1. VUITY [Suspect]
     Active Substance: PILOCARPINE HYDROCHLORIDE
     Indication: Presbyopia
     Dosage: OTHER QUANTITY : 1 DROP(S);?FREQUENCY : DAILY;?
     Route: 047
     Dates: start: 20220421, end: 20220421

REACTIONS (5)
  - Visual impairment [None]
  - Vitreous floaters [None]
  - Eye colour change [None]
  - Retinal detachment [None]
  - Eye operation [None]

NARRATIVE: CASE EVENT DATE: 20220421
